FAERS Safety Report 11745955 (Version 2)
Quarter: 2015Q4

REPORT INFORMATION
  Report Type: Spontaneous
  Country: US (occurrence: US)
  Receive Date: 20151117
  Receipt Date: 20151217
  Transmission Date: 20160304
  Serious: Yes (Other)
  Sender: FDA-Public Use
  Company Number: US-SMITH AND NEPHEW, INC-2015SMT00509

PATIENT
  Age: 79 Year
  Sex: Female

DRUGS (6)
  1. FRAGMIN [Concomitant]
     Active Substance: DALTEPARIN SODIUM
     Dosage: UNK
  2. DOXYCYCLINE MONOHYDRATE [Concomitant]
     Active Substance: DOXYCYCLINE
     Dosage: UNK UNK, 2X/DAY
  3. REGRANEX [Suspect]
     Active Substance: BECAPLERMIN
     Indication: WOUND
     Dosage: UNK, 1X/DAY
     Route: 061
     Dates: start: 20151010, end: 20151029
  4. A FAST ACTING INSULIN (UNSPECIFIED) [Concomitant]
     Dosage: UNK
  5. UNSPECIFIED MEDICATION(S) [Concomitant]
     Dosage: UNK
  6. LANTUS [Concomitant]
     Active Substance: INSULIN GLARGINE
     Dosage: UNK

REACTIONS (7)
  - Wound complication [Unknown]
  - Cellulitis [Unknown]
  - Foot amputation [Recovered/Resolved with Sequelae]
  - Application site infection [Unknown]
  - Abscess limb [Unknown]
  - Staphylococcal osteomyelitis [Unknown]
  - Neuropathy peripheral [Unknown]

NARRATIVE: CASE EVENT DATE: 20150804
